FAERS Safety Report 14473529 (Version 3)
Quarter: 2018Q1

REPORT INFORMATION
  Report Type: Report from Study
  Country: ES (occurrence: ES)
  Receive Date: 20180201
  Receipt Date: 20180302
  Transmission Date: 20180509
  Serious: Yes (Other)
  Sender: FDA-Public Use
  Company Number: ES-009507513-1801ESP008398

PATIENT
  Age: 53 Year
  Sex: Female

DRUGS (9)
  1. TENOFOVIR [Suspect]
     Active Substance: TENOFOVIR
     Indication: HIV INFECTION
  2. EMTRICITABINE [Suspect]
     Active Substance: EMTRICITABINE
     Indication: HIV INFECTION CDC GROUP III
     Dosage: UNK
     Route: 065
     Dates: start: 2014
  3. EMTRICITABINE [Suspect]
     Active Substance: EMTRICITABINE
     Indication: HIV INFECTION CDC CATEGORY C
  4. EMTRICITABINE [Suspect]
     Active Substance: EMTRICITABINE
     Indication: HIV INFECTION
  5. TENOFOVIR [Suspect]
     Active Substance: TENOFOVIR
     Indication: HIV INFECTION CDC CATEGORY C
  6. RALTEGRAVIR POTASSIUM [Suspect]
     Active Substance: RALTEGRAVIR POTASSIUM
     Indication: HIV INFECTION CDC GROUP III
     Dosage: UNK
     Route: 065
     Dates: start: 2014
  7. TENOFOVIR [Suspect]
     Active Substance: TENOFOVIR
     Indication: HIV INFECTION CDC GROUP III
     Dosage: UNK
     Route: 065
     Dates: start: 2014
  8. SULFADIAZINE. [Concomitant]
     Active Substance: SULFADIAZINE
     Indication: CEREBRAL TOXOPLASMOSIS
     Dosage: UNK
     Route: 065
  9. SULFAMETHOXAZOLE (+) TRIMETHOPRIM [Concomitant]
     Active Substance: SULFAMETHOXAZOLE\TRIMETHOPRIM
     Indication: PNEUMOCYSTIS JIROVECII PNEUMONIA
     Route: 065

REACTIONS (2)
  - Renal impairment [Unknown]
  - Hidradenitis [Recovered/Resolved]

NARRATIVE: CASE EVENT DATE: 2014
